FAERS Safety Report 6328997-3 (Version None)
Quarter: 2009Q3

REPORT INFORMATION
  Report Type: 
  Country: None (occurrence: None)
  Receive Date: 20090824
  Receipt Date: 20090824
  Transmission Date: 20100115
  Serious: Yes (Life-Threatening, Hospitalization, Other)
  Sender: FDA-Public Use
  Company Number: None

PATIENT
  Age: 55 Year
  Sex: Male
  Weight: 77.1115 kg

DRUGS (1)
  1. VERAPAMIL [Suspect]
     Indication: HYPERTENSION
     Dosage: 240 MG ONCE A DAY
     Dates: start: 20090601, end: 20090821

REACTIONS (8)
  - ABDOMINAL DISTENSION [None]
  - CARDIAC DISORDER [None]
  - CHEST PAIN [None]
  - FLATULENCE [None]
  - HYPOGLYCAEMIA [None]
  - MUSCLE INJURY [None]
  - MUSCLE SPASMS [None]
  - PAIN [None]
